FAERS Safety Report 5662175-6 (Version None)
Quarter: 2008Q1

REPORT INFORMATION
  Report Type: 
  Country: None (occurrence: None)
  Receive Date: 20080221
  Receipt Date: 20070724
  Transmission Date: 20080703
  Serious: Yes (Other)
  Sender: FDA-Public Use
  Company Number: PHEH2007US10347

PATIENT
  Age: 82 Year
  Sex: Male

DRUGS (9)
  1. DIOVAN [Suspect]
     Dosage: 160 MG, BID : 320 MG, BID : 160 MG, BID
     Dates: start: 20040101
  2. BIDIL [Concomitant]
  3. COREG [Concomitant]
  4. INSULIN (INSULIN) [Concomitant]
  5. PLAVIX [Concomitant]
  6. POTASSIUM (POTASSIUM) [Concomitant]
  7. PEPCID [Concomitant]
  8. ASPIRIN [Concomitant]
  9. CRESTOR [Concomitant]

REACTIONS (2)
  - BLOOD CREATININE INCREASED [None]
  - BLOOD PRESSURE INADEQUATELY CONTROLLED [None]
